FAERS Safety Report 9722856 (Version 1)
Quarter: 2013Q4

REPORT INFORMATION
  Report Type: Spontaneous
  Country: US (occurrence: US)
  Receive Date: 20131202
  Receipt Date: 20131202
  Transmission Date: 20140711
  Serious: No
  Sender: FDA-Public Use
  Company Number: US-BAYER-2013-146718

PATIENT
  Age: 86 Year
  Sex: Female
  Weight: 42.18 kg

DRUGS (2)
  1. ALEVE CAPLET [Suspect]
     Indication: SCIATICA
     Dosage: 1 DF, BID
     Route: 048
     Dates: start: 201309, end: 20131123
  2. ALEVE LIQUID GELS [Suspect]
     Indication: SCIATICA
     Dosage: 1 DF, TID
     Route: 048
     Dates: start: 20131123, end: 20131127

REACTIONS (3)
  - Faeces discoloured [Not Recovered/Not Resolved]
  - Incorrect drug administration duration [None]
  - Diarrhoea [Not Recovered/Not Resolved]
